FAERS Safety Report 4847524-0 (Version None)
Quarter: 2005Q4

REPORT INFORMATION
  Report Type: 
  Country: None (occurrence: None)
  Receive Date: 20051205
  Receipt Date: 20051122
  Transmission Date: 20060501
  Serious: No
  Sender: FDA-Public Use
  Company Number: ST-2005-008596

PATIENT
  Age: 68 Year
  Sex: Female

DRUGS (10)
  1. OLMETEC [Suspect]
     Indication: HYPERTENSION
     Dosage: 40 MG DAILY PO
     Route: 048
     Dates: start: 20050615
  2. CYANOCOBALAMIN [Concomitant]
  3. KINEDAK [Concomitant]
  4. CHOLEBRINE [Concomitant]
  5. HUMACART-N [Concomitant]
  6. ALDOMET [Concomitant]
  7. AMLODIPINE BESYLATE [Concomitant]
  8. LOCHOL [Concomitant]
  9. OPALMON [Concomitant]
  10. DIOVAN [Concomitant]

REACTIONS (3)
  - CONDITION AGGRAVATED [None]
  - HYPOGLYCAEMIA [None]
  - LOSS OF CONSCIOUSNESS [None]
